FAERS Safety Report 4519176-0 (Version None)
Quarter: 2004Q4

REPORT INFORMATION
  Report Type: 
  Country: None (occurrence: None)
  Receive Date: 20041206
  Receipt Date: 20041126
  Transmission Date: 20050328
  Serious: Yes (Hospitalization)
  Sender: FDA-Public Use
  Company Number: FR-ROCHE-387585

PATIENT
  Age: 78 Year
  Sex: Male
  Weight: 67 kg

DRUGS (12)
  1. ROCEPHIN [Suspect]
     Indication: DRUG USE FOR UNKNOWN INDICATION
     Route: 042
     Dates: start: 20040923, end: 20041010
  2. ROCEPHIN [Suspect]
     Route: 042
     Dates: start: 20040910, end: 20040916
  3. BACTRIM [Suspect]
     Indication: DRUG USE FOR UNKNOWN INDICATION
     Route: 048
     Dates: start: 20040913, end: 20040923
  4. VANCOCIN HCL [Suspect]
     Indication: DRUG USE FOR UNKNOWN INDICATION
     Route: 042
     Dates: start: 20040923, end: 20041001
  5. ELISOR [Suspect]
     Indication: DRUG USE FOR UNKNOWN INDICATION
     Route: 048
     Dates: start: 20040923, end: 20040925
  6. TARGOCID [Suspect]
     Indication: DRUG USE FOR UNKNOWN INDICATION
     Route: 042
     Dates: start: 20040916, end: 20040923
  7. PLAVIX [Concomitant]
     Route: 048
     Dates: end: 20040923
  8. FONZYLANE [Concomitant]
     Dates: end: 20040925
  9. OMIX [Concomitant]
     Dates: end: 20040910
  10. JOSIR [Concomitant]
     Dates: start: 20040910
  11. SIMVASTATIN [Concomitant]
  12. VANCOMYCIN [Concomitant]
     Dates: start: 20040910, end: 20040916

REACTIONS (3)
  - EPISTAXIS [None]
  - PURPURA [None]
  - THROMBOCYTOPENIA [None]
